FAERS Safety Report 10271726 (Version 2)
Quarter: 2017Q2

REPORT INFORMATION
  Report Type: Spontaneous
  Country: US (occurrence: US)
  Receive Date: 20140701
  Receipt Date: 20170622
  Transmission Date: 20170829
  Serious: No
  Sender: FDA-Public Use
  Company Number: US-SA-2014SA039907

PATIENT
  Age: 6 Year
  Sex: Female
  Weight: 15.87 kg

DRUGS (3)
  1. CEREZYME [Suspect]
     Active Substance: IMIGLUCERASE
     Indication: GAUCHER^S DISEASE
     Dosage: 800 UNITS DOSE:50.40 UNIT(S)/KILOGRAM BODYWEIGHT
     Route: 041
     Dates: start: 20140228
  2. PANTHENOL/RETINOL/THIAMINE HYDROCHLORIDE/ASCORBIC ACID/ERGOCALCIFEROL/FOLIC ACID/RIBOFLAVIN/NICOTINA [Concomitant]
     Indication: ROUTINE HEALTH MAINTENANCE
     Dates: start: 20140201
  3. VITAMIN D/CALCIUM [Concomitant]
     Indication: MINERAL SUPPLEMENTATION
     Dosage: DOSE:400 UNIT(S)
     Dates: start: 20140201

REACTIONS (3)
  - Vomiting [Recovered/Resolved]
  - Bone pain [Unknown]
  - Arthropathy [Unknown]

NARRATIVE: CASE EVENT DATE: 20140314
